FAERS Safety Report 8602312 (Version 2)
Quarter: 2013Q2

REPORT INFORMATION
  Report Type: Spontaneous
  Country: US (occurrence: US)
  Receive Date: 20120607
  Receipt Date: 20130619
  Transmission Date: 20140414
  Serious: No
  Sender: FDA-Public Use
  Company Number: US-ASTRAZENECA-2012SE34696

PATIENT
  Sex: Male

DRUGS (16)
  1. NEXIUM [Suspect]
     Indication: GASTRIC DISORDER
     Route: 048
  2. NEXIUM [Suspect]
     Indication: GASTRIC DISORDER
     Dosage: TWICE A DAY
     Route: 048
     Dates: start: 2004
  3. NEXIUM [Suspect]
     Indication: GASTRIC DISORDER
     Route: 048
     Dates: start: 20041120
  4. ATENOLOL [Concomitant]
     Dates: start: 20050617
  5. TAMSULOSIN [Concomitant]
     Dates: start: 20110610
  6. ATORVASTATIN [Concomitant]
     Dates: start: 20110610
  7. ZETIA [Concomitant]
     Dates: start: 20100123
  8. RAMIPRIL [Concomitant]
     Dates: start: 20080421
  9. NIASPAN [Concomitant]
     Dates: start: 20080610
  10. ALTACE [Concomitant]
     Dates: start: 20050617
  11. LIPITOR [Concomitant]
     Dates: start: 20050617
  12. LIPITOR [Concomitant]
     Dates: start: 20050620
  13. LIPITOR [Concomitant]
     Dates: start: 20080912
  14. PROMETHAZINE [Concomitant]
     Dates: start: 20061009
  15. CYCLOBENZAPR [Concomitant]
     Dates: start: 20080325
  16. CIALIS [Concomitant]
     Dates: start: 20080912

REACTIONS (2)
  - Osteoporosis [Unknown]
  - Multiple fractures [Unknown]
